FAERS Safety Report 9723707 (Version 1)
Quarter: 2013Q4

REPORT INFORMATION
  Report Type: Spontaneous
  Country: JP (occurrence: JP)
  Receive Date: 20131202
  Receipt Date: 20131202
  Transmission Date: 20140711
  Serious: Yes (Other)
  Sender: FDA-Public Use
  Company Number: JP-BRISTOL-MYERS SQUIBB COMPANY-19848381

PATIENT
  Age: 73 Year
  Sex: Female

DRUGS (1)
  1. TAXOL INJ [Suspect]
     Route: 042
     Dates: start: 200909, end: 201108

REACTIONS (4)
  - Osteonecrosis of jaw [Unknown]
  - Herpes virus infection [Unknown]
  - Lacunar infarction [Unknown]
  - Atrial fibrillation [Unknown]
